FAERS Safety Report 17299107 (Version 2)
Quarter: 2020Q3

REPORT INFORMATION
  Report Type: Spontaneous
  Country: CA (occurrence: CA)
  Receive Date: 20200121
  Receipt Date: 20200921
  Transmission Date: 20201102
  Serious: Yes (Life-Threatening, Hospitalization, Other)
  Sender: FDA-Public Use
  Company Number: CA-JNJFOC-20200125671

PATIENT
  Age: 58 Year
  Sex: Male
  Weight: 113 kg

DRUGS (16)
  1. GLICLAZIDE MR STADA [Concomitant]
     Route: 048
  2. METFORMIN [Concomitant]
     Active Substance: METFORMIN HYDROCHLORIDE
     Route: 048
  3. ACETAMINOPHEN. [Concomitant]
     Active Substance: ACETAMINOPHEN
  4. LEVEMIR [Concomitant]
     Active Substance: INSULIN DETEMIR
  5. NOVORAPID [Concomitant]
     Active Substance: INSULIN ASPART
  6. PERINDOPRIL [Concomitant]
     Active Substance: PERINDOPRIL
  7. SYNTHROID [Concomitant]
     Active Substance: LEVOTHYROXINE SODIUM
  8. VITAMIN D3 [Concomitant]
     Active Substance: CHOLECALCIFEROL
     Dosage: 1000 IU
  9. INVOKANA [Suspect]
     Active Substance: CANAGLIFLOZIN
     Route: 048
  10. FUROSEMIDE. [Concomitant]
     Active Substance: FUROSEMIDE
  11. INVOKANA [Suspect]
     Active Substance: CANAGLIFLOZIN
     Indication: TYPE 2 DIABETES MELLITUS
     Route: 048
  12. ALFACALCIDOL [Concomitant]
     Active Substance: ALFACALCIDOL
  13. TRAJENTA [Concomitant]
     Active Substance: LINAGLIPTIN
     Route: 048
  14. AMLODIPINE [Concomitant]
     Active Substance: AMLODIPINE BESYLATE
  15. SPIRONOLACTONE. [Concomitant]
     Active Substance: SPIRONOLACTONE
  16. ROSUVASTATIN. [Concomitant]
     Active Substance: ROSUVASTATIN

REACTIONS (4)
  - Endotracheal intubation [Unknown]
  - Septic shock [Recovering/Resolving]
  - Fournier^s gangrene [Recovering/Resolving]
  - Surgery [Recovering/Resolving]
